FAERS Safety Report 9822773 (Version 6)
Quarter: 2014Q2

REPORT INFORMATION
  Report Type: Spontaneous
  Country: US (occurrence: US)
  Receive Date: 20140116
  Receipt Date: 20140523
  Transmission Date: 20141212
  Serious: Yes (Hospitalization, Other)
  Sender: FDA-Public Use
  Company Number: PHEH2008US011966

PATIENT
  Age: 47 Year
  Sex: Female

DRUGS (11)
  1. ZOMETA [Suspect]
     Route: 042
     Dates: start: 200210, end: 2007
  2. AREDIA [Suspect]
     Dosage: 90 MG
     Route: 042
     Dates: start: 200210, end: 2007
  3. DECADRON                                /CAN/ [Concomitant]
     Dates: start: 200210, end: 200301
  4. RELAFEN [Concomitant]
  5. PREMARIN                                /NEZ/ [Concomitant]
  6. ZOLOFT (SERTRALINE HYDROCHLORIDE) [Concomitant]
  7. XANAX [Concomitant]
  8. TOPROL XL [Concomitant]
  9. EFFEXOR [Concomitant]
  10. TRAZODONE [Concomitant]
     Dosage: 50 MG,
     Route: 048
     Dates: start: 20030603
  11. MIRTAZAPINE [Concomitant]
     Dosage: 15 MG,
     Route: 048
     Dates: start: 20030603

REACTIONS (123)
  - Abdominal pain [Recovering/Resolving]
  - Diarrhoea [Recovering/Resolving]
  - Choking sensation [Unknown]
  - Dysphagia [Unknown]
  - Decreased appetite [Unknown]
  - Lethargy [Recovered/Resolved]
  - Asthenia [Unknown]
  - Adrenal adenoma [Unknown]
  - Reflux laryngitis [Unknown]
  - Acute myocardial infarction [Unknown]
  - Spinal osteoarthritis [Unknown]
  - Osteonecrosis of jaw [Unknown]
  - Pain [Unknown]
  - Infection [Unknown]
  - Lymphadenopathy [Unknown]
  - Deformity [Unknown]
  - Atrioventricular block first degree [Unknown]
  - Electrocardiogram ST-T segment abnormal [Unknown]
  - Vomiting [Unknown]
  - Drug hypersensitivity [Unknown]
  - Anxiety [Unknown]
  - Hypercalcaemia [Unknown]
  - Blood parathyroid hormone increased [Unknown]
  - Drug dependence [Unknown]
  - Dyspnoea [Unknown]
  - Palpitations [Unknown]
  - Menstrual disorder [Unknown]
  - Hot flush [Unknown]
  - Back pain [Not Recovered/Not Resolved]
  - Joint stiffness [Unknown]
  - Musculoskeletal pain [Not Recovered/Not Resolved]
  - Chest pain [Unknown]
  - Upper respiratory tract infection [Unknown]
  - Ocular hyperaemia [Unknown]
  - Nausea [Unknown]
  - Eye swelling [Unknown]
  - Headache [Unknown]
  - Constipation [Unknown]
  - Chest discomfort [Unknown]
  - Thirst [Unknown]
  - Lacrimation increased [Unknown]
  - Muscle spasms [Unknown]
  - Dizziness [Unknown]
  - Periodontal disease [Unknown]
  - Dental caries [Unknown]
  - Tooth abscess [Unknown]
  - Thyroid neoplasm [Unknown]
  - Parathyroid tumour benign [Unknown]
  - Depression [Unknown]
  - Abasia [Unknown]
  - Dysstasia [Unknown]
  - Insomnia [Unknown]
  - Vision blurred [Unknown]
  - Visual acuity reduced [Unknown]
  - Cardiac murmur [Unknown]
  - Peripheral swelling [Unknown]
  - Varicose vein [Unknown]
  - Dyspepsia [Unknown]
  - Dry skin [Unknown]
  - Alopecia [Unknown]
  - Gastrooesophageal reflux disease [Unknown]
  - Hypoxia [Unknown]
  - Pulmonary mass [Unknown]
  - Emphysema [Unknown]
  - Hypokalaemia [Unknown]
  - Chronic respiratory failure [Unknown]
  - Arteriosclerosis coronary artery [Unknown]
  - Dehydration [Unknown]
  - Syncope [Unknown]
  - Pulmonary oedema [Unknown]
  - Arrhythmia [Unknown]
  - Osteopenia [Unknown]
  - Osteoarthritis [Unknown]
  - Fall [Unknown]
  - Lung adenocarcinoma metastatic [Unknown]
  - Haemoptysis [Unknown]
  - Neck pain [Unknown]
  - Vertebral osteophyte [Unknown]
  - Thyroid cyst [Unknown]
  - Lung cyst [Unknown]
  - Arteriosclerosis [Unknown]
  - Lung infiltration [Unknown]
  - Aortic calcification [Unknown]
  - Vascular calcification [Unknown]
  - Sepsis [Unknown]
  - Scoliosis [Unknown]
  - Atelectasis [Unknown]
  - Chronic obstructive pulmonary disease [Unknown]
  - Pulmonary bulla [Unknown]
  - Supraventricular tachycardia [Unknown]
  - Mitral valve incompetence [Unknown]
  - Tricuspid valve incompetence [Unknown]
  - Plasma cell myeloma [Unknown]
  - Malignant neoplasm progression [Unknown]
  - Hypothyroidism [Unknown]
  - Atrial flutter [Unknown]
  - Pulmonary embolism [Unknown]
  - Angina pectoris [Unknown]
  - Hypercholesterolaemia [Unknown]
  - Urinary incontinence [Unknown]
  - Hyperparathyroidism [Unknown]
  - Memory impairment [Unknown]
  - Bone pain [Unknown]
  - Cough [Unknown]
  - Hepatic calcification [Unknown]
  - Granulomatous liver disease [Unknown]
  - Dyslipidaemia [Unknown]
  - Arthropathy [Unknown]
  - Interstitial lung disease [Unknown]
  - Aortic valve sclerosis [Unknown]
  - Cardiomegaly [Unknown]
  - Burn oesophageal [Unknown]
  - Aortic dilatation [Unknown]
  - Weight decreased [Unknown]
  - Pyrexia [Unknown]
  - Fatigue [Unknown]
  - Early satiety [Unknown]
  - Musculoskeletal chest pain [Unknown]
  - Wound [Unknown]
  - Environmental exposure [Unknown]
  - Helicobacter infection [Unknown]
  - Hypertensive heart disease [Unknown]
  - Dermal cyst [Unknown]
